FAERS Safety Report 6446926-9 (Version None)
Quarter: 2009Q4

REPORT INFORMATION
  Report Type: 
  Country: None (occurrence: None)
  Receive Date: 20091119
  Receipt Date: 20091111
  Transmission Date: 20100525
  Serious: Yes (Life-Threatening, Hospitalization)
  Sender: FDA-Public Use
  Company Number: JP-MERCK-0911USA02617

PATIENT
  Age: 56 Year
  Sex: Male

DRUGS (2)
  1. ZETIA [Suspect]
     Indication: HYPERCHOLESTEROLAEMIA
     Route: 048
     Dates: start: 20090902
  2. ATORVASTATIN CALCIUM [Concomitant]
     Route: 065
     Dates: start: 20061122

REACTIONS (1)
  - ACUTE MYOCARDIAL INFARCTION [None]
